FAERS Safety Report 7968944-1 (Version None)
Quarter: 2011Q4

REPORT INFORMATION
  Report Type: 
  Country: None (occurrence: None)
  Receive Date: 20111209
  Receipt Date: 20111129
  Transmission Date: 20120403
  Serious: Yes (Hospitalization, Other)
  Sender: FDA-Public Use
  Company Number: BR-ELI_LILLY_AND_COMPANY-BR201109005417

PATIENT
  Sex: Male
  Weight: 82 kg

DRUGS (2)
  1. BYETTA [Suspect]
     Indication: TYPE 2 DIABETES MELLITUS
     Dosage: 5 UG, BID
     Route: 065
     Dates: start: 20090101
  2. BYETTA [Suspect]
     Dosage: UNK, UNKNOWN
     Route: 065

REACTIONS (7)
  - INTENTIONAL DRUG MISUSE [None]
  - BLOOD GLUCOSE ABNORMAL [None]
  - HUNGER [None]
  - NAUSEA [None]
  - FATIGUE [None]
  - DRUG INEFFECTIVE [None]
  - LUNG NEOPLASM [None]
